FAERS Safety Report 16940456 (Version 1)
Quarter: 2019Q4

REPORT INFORMATION
  Report Type: Spontaneous
  Country: US (occurrence: US)
  Receive Date: 20191021
  Receipt Date: 20191021
  Transmission Date: 20200122
  Serious: No
  Sender: FDA-Public Use
  Company Number: US-009507513-1910USA010307

PATIENT
  Sex: Female

DRUGS (2)
  1. PUREGON PEN [DEVICE] [Suspect]
     Active Substance: DEVICE
     Dosage: 300 IU INTERNATIONAL UNIT(S), QD
     Route: 058
  2. FOLLISTIM AQ [Suspect]
     Active Substance: FOLLITROPIN
     Dosage: INJECT 450 IU SUBCUTANEOUSLY DAILY AS DIRECTED
     Route: 058

REACTIONS (3)
  - Device leakage [Unknown]
  - Incorrect dose administered [Unknown]
  - Drug dose omission by device [Unknown]

NARRATIVE: CASE EVENT DATE: 20191012
